FAERS Safety Report 14262199 (Version 1)
Quarter: 2017Q4

REPORT INFORMATION
  Report Type: Report from Study
  Country: US (occurrence: US)
  Receive Date: 20171208
  Receipt Date: 20171208
  Transmission Date: 20180321
  Serious: No
  Sender: FDA-Public Use
  Company Number: US-KYOWAKIRIN-2017BKK000236

PATIENT

DRUGS (1)
  1. GRANISETRON [Suspect]
     Active Substance: GRANISETRON
     Indication: CHEMOTHERAPY
     Dosage: PLACE 1 PATCH 24-48H BEFORE CHEMOTHERAPY. REMOVE A MINIMUM OF 24H AFTER COMPLETION OF CHEMOTHERAPY
     Route: 062
     Dates: start: 20170123

REACTIONS (6)
  - Malaise [Unknown]
  - Dehydration [Unknown]
  - Product adhesion issue [Unknown]
  - Product label confusion [Unknown]
  - Inappropriate schedule of drug administration [Unknown]
  - Drug administered at inappropriate site [Unknown]

NARRATIVE: CASE EVENT DATE: 201701
